FAERS Safety Report 5271356-5 (Version None)
Quarter: 2007Q1

REPORT INFORMATION
  Report Type: 
  Country: None (occurrence: None)
  Receive Date: 20061214
  Receipt Date: 20060803
  Transmission Date: 20070707
  Serious: Yes (Other)
  Sender: FDA-Public Use
  Company Number: 2006096370

PATIENT
  Age: 30 Year
  Sex: Male
  Weight: 88.4514 kg

DRUGS (1)
  1. BEXTRA [Suspect]
     Indication: MUSCULOSKELETAL PAIN
     Dosage: 60 MG (20 MG,3 IN 1 D)
     Dates: start: 20020701

REACTIONS (4)
  - CONVULSION [None]
  - DYSPNOEA [None]
  - RASH [None]
  - SLEEP APNOEA SYNDROME [None]
